FAERS Safety Report 10741654 (Version 2)
Quarter: 2015Q2

REPORT INFORMATION
  Report Type: Report from Study
  Country: US (occurrence: None)
  Receive Date: 20150123
  Receipt Date: 20150420
  Transmission Date: 20150821
  Serious: Yes (Other)
  Sender: FDA-Public Use
  Company Number: AEGR000901

PATIENT
  Age: 54 Year
  Sex: Female
  Weight: 66.7 kg

DRUGS (7)
  1. JUXTAPID [Suspect]
     Active Substance: LOMITAPIDE MESYLATE
     Indication: TYPE IIA HYPERLIPIDAEMIA
     Dates: start: 20131030
  2. LOSARTAN HYDROCHLOROTHIAZIDE (HYDROCHLOROTHIAZIDE LOSARTAN POTASSIUM) [Concomitant]
  3. AMBIEN [Concomitant]
     Active Substance: ZOLPIDEM TARTRATE
  4. PREVACID [Concomitant]
     Active Substance: LANSOPRAZOLE
  5. XANAX [Concomitant]
     Active Substance: ALPRAZOLAM
  6. OMEGA (CONVALLARIA MAJALIS, CRATAEGUS LAEVIGATA, PROXYPHYLLINE) [Concomitant]
  7. VITAMIN E (TOCOPHERYL ACETATE) [Concomitant]

REACTIONS (2)
  - Therapy cessation [None]
  - Liver function test abnormal [None]

NARRATIVE: CASE EVENT DATE: 20140122
